FAERS Safety Report 9584841 (Version 1)
Quarter: 2013Q4

REPORT INFORMATION
  Report Type: Spontaneous
  Country: US (occurrence: US)
  Receive Date: 20131002
  Receipt Date: 20131002
  Transmission Date: 20140711
  Serious: No
  Sender: FDA-Public Use
  Company Number: US-AMGEN-USASP2013055258

PATIENT
  Age: 58 Year
  Sex: Female

DRUGS (6)
  1. ENBREL [Suspect]
     Indication: PRODUCT USED FOR UNKNOWN INDICATION
     Dosage: 50 MG, QWK
     Route: 058
  2. METHOTREXATE [Concomitant]
     Dosage: 2.5 MG, UNK
  3. EFFEXOR [Concomitant]
     Dosage: 100 MG, UNK
  4. FOLIC ACID [Concomitant]
     Dosage: 20 MG, UNK
  5. SYNTHROID [Concomitant]
     Dosage: 100 MUG, UNK
  6. CALCIUM [Concomitant]
     Dosage: 500 UNK, UNK

REACTIONS (1)
  - Drug ineffective [Unknown]
